FAERS Safety Report 4845442-5 (Version None)
Quarter: 2005Q4

REPORT INFORMATION
  Report Type: 
  Country: None (occurrence: None)
  Receive Date: 20051125
  Receipt Date: 20051114
  Transmission Date: 20060501
  Serious: Yes (Hospitalization, Other)
  Sender: FDA-Public Use
  Company Number: HQWYE548114NOV05

PATIENT
  Age: 85 Year
  Sex: Female

DRUGS (6)
  1. CORDARONE [Suspect]
     Dosage: 200 MG 1 PER 1 DAY, ORAL
     Route: 048
  2. PREVISCAN (FLUINDIONE, ) [Suspect]
     Dosage: 5 MG 1X PER 1 DAY, ORAL
     Route: 048
  3. LASILIX (FUROSEMIDE) [Concomitant]
  4. FENOFIBRATE [Concomitant]
  5. LEVOTHYROXINE SODIUM [Concomitant]
  6. NITRIDERM TTS (GLYCRYL TRINITRATE) [Concomitant]

REACTIONS (9)
  - CARDIAC FAILURE ACUTE [None]
  - CONDITION AGGRAVATED [None]
  - DRUG INTERACTION [None]
  - FALL [None]
  - INTERNATIONAL NORMALISED RATIO INCREASED [None]
  - MULTIPLE DRUG OVERDOSE [None]
  - PROTHROMBIN TIME RATIO DECREASED [None]
  - PULMONARY OEDEMA [None]
  - SOMNOLENCE [None]
